FAERS Safety Report 7904212-1 (Version None)
Quarter: 2011Q4

REPORT INFORMATION
  Report Type: 
  Country: None (occurrence: None)
  Receive Date: 20111109
  Receipt Date: 20111025
  Transmission Date: 20120403
  Serious: Yes (Life-Threatening, Hospitalization, Other)
  Sender: FDA-Public Use
  Company Number: NL-WATSON-2011-17232

PATIENT
  Age: 27 Year
  Sex: Female

DRUGS (1)
  1. DESMOPRESSIN ACETATE [Suspect]
     Indication: ENURESIS
     Dosage: 0.2 MG DAILY X 3 MONTHS
     Route: 048

REACTIONS (4)
  - INTESTINAL ISCHAEMIA [None]
  - COAGULATION FACTOR VIII LEVEL INCREASED [None]
  - ARTERIAL THROMBOSIS [None]
  - VON WILLEBRAND'S FACTOR ANTIGEN INCREASED [None]
